FAERS Safety Report 12693583 (Version 1)
Quarter: 2016Q3

REPORT INFORMATION
  Report Type: Spontaneous
  Country: NO (occurrence: NO)
  Receive Date: 20160829
  Receipt Date: 20160829
  Transmission Date: 20161109
  Serious: Yes (Death)
  Sender: FDA-Public Use
  Company Number: NO-PFIZER INC-2016401527

PATIENT
  Age: 74 Year
  Sex: Male

DRUGS (6)
  1. FRAGMIN [Suspect]
     Active Substance: DALTEPARIN SODIUM
     Indication: PORTAL VEIN THROMBOSIS
     Dosage: 7500 IU, 2X/DAY
     Route: 058
     Dates: start: 201607
  2. FRAGMIN [Suspect]
     Active Substance: DALTEPARIN SODIUM
     Indication: MESENTERIC VEIN THROMBOSIS
  3. CARVEDILOL. [Concomitant]
     Active Substance: CARVEDILOL
     Dosage: 25 MG, 2X/DAY
     Route: 048
  4. SOMAC [Concomitant]
     Active Substance: PANTOPRAZOLE SODIUM
     Dosage: 20 MG, 2X/DAY
     Route: 048
  5. EFEXOR DEPOT [Concomitant]
     Active Substance: VENLAFAXINE HYDROCHLORIDE
     Dosage: 150 MG, 2X/DAY
     Route: 048
  6. PLENDIL [Concomitant]
     Active Substance: FELODIPINE
     Dosage: 10 MG, 1X/DAY
     Route: 048

REACTIONS (1)
  - Cerebral haemorrhage [Fatal]

NARRATIVE: CASE EVENT DATE: 20160810
